FAERS Safety Report 23171833 (Version 1)
Quarter: 2023Q4

REPORT INFORMATION
  Report Type: Spontaneous
  Country: US (occurrence: None)
  Receive Date: 20231110
  Receipt Date: 20231110
  Transmission Date: 20240109
  Serious: No
  Sender: FDA-Public Use
  Company Number: None

PATIENT
  Age: 38 Year
  Sex: Female

DRUGS (1)
  1. SKYRIZI [Suspect]
     Active Substance: RISANKIZUMAB-RZAA
     Indication: Psoriasis
     Dosage: FREQUENCY : AS DIRECTED;?INJECT 130 MG (1 PEN) SUBCUTANEOUSLY AT WEEK 0 AND WEEK 4 AS DIRECTED?
     Route: 058
     Dates: start: 202207

REACTIONS (1)
  - Influenza [None]
